FAERS Safety Report 5012317-0 (Version None)
Quarter: 2006Q2

REPORT INFORMATION
  Report Type: 
  Country: None (occurrence: None)
  Receive Date: 20060404
  Receipt Date: 20060118
  Transmission Date: 20061013
  Serious: No
  Sender: FDA-Public Use
  Company Number: US200601003156

PATIENT
  Age: 88 Year
  Sex: Female

DRUGS (1)
  1. CYMBALTA [Suspect]
     Indication: NEURALGIA
     Dosage: 30 MG, DAILY (1/D), ORAL
     Route: 048
     Dates: start: 20060111, end: 20060114

REACTIONS (5)
  - ANOREXIA [None]
  - CONFUSIONAL STATE [None]
  - COORDINATION ABNORMAL [None]
  - NAUSEA [None]
  - WEIGHT DECREASED [None]
